FAERS Safety Report 9127345 (Version 3)
Quarter: 2013Q3

REPORT INFORMATION
  Report Type: Report from Study
  Country: JP (occurrence: JP)
  Receive Date: 20130228
  Receipt Date: 20130909
  Transmission Date: 20140515
  Serious: Yes (Other)
  Sender: FDA-Public Use
  Company Number: JP-VERTEX PHARMACEUTICALS INC.-2013-002775

PATIENT
  Age: 50 Year
  Sex: Male

DRUGS (12)
  1. VX-950 (TELAPREVIR) [Suspect]
     Indication: CHRONIC HEPATITIS C
     Dosage: 1500 MG, QD
     Route: 048
     Dates: start: 20120829, end: 20121121
  2. PEGINTERFERON ALFA-2B [Suspect]
     Indication: CHRONIC HEPATITIS C
     Dosage: 1.64 ?G/KG, QW
     Route: 058
     Dates: start: 20120829, end: 20121128
  3. PEGINTERFERON ALFA-2B [Suspect]
     Dosage: 1.43 ?G/KG, QW
     Route: 058
     Dates: start: 20121205
  4. RIBAVIRIN [Concomitant]
     Dosage: 800 MG, QD
     Route: 048
     Dates: start: 20120829, end: 20120925
  5. RIBAVIRIN [Concomitant]
     Dosage: 600 MG, QD
     Route: 048
     Dates: start: 20120926, end: 20121128
  6. RIBAVIRIN [Concomitant]
     Dosage: 600 MG, QD
     Route: 048
     Dates: start: 20121205
  7. GLYCYRON [Concomitant]
     Dosage: 6 DF, QD
     Route: 048
     Dates: end: 20120911
  8. PROHEPARUM [Concomitant]
     Dosage: 3 DF, QD
     Route: 048
     Dates: end: 20120911
  9. URSO [Concomitant]
     Dosage: 600 MG, QD
     Route: 048
     Dates: start: 20120912
  10. MUCOSTA [Concomitant]
     Dosage: 300 MG, QD
     Route: 048
     Dates: start: 20120912
  11. PARIET [Concomitant]
     Dosage: 10 MG, QD
     Route: 048
     Dates: start: 20120912
  12. ZYLORIC [Concomitant]
     Dosage: 100 MG, QD
     Route: 048
     Dates: end: 20130131

REACTIONS (1)
  - White blood cell count decreased [Recovered/Resolved]
